FAERS Safety Report 8156069-4 (Version None)
Quarter: 2012Q1

REPORT INFORMATION
  Report Type: 
  Country: None (occurrence: None)
  Receive Date: 20120222
  Receipt Date: 20120214
  Transmission Date: 20120608
  Serious: Yes (Other)
  Sender: FDA-Public Use
  Company Number: US-BAYER-2011-118919

PATIENT
  Age: 34 Year
  Sex: Female
  Weight: 88.435 kg

DRUGS (1)
  1. MIRENA [Suspect]
     Indication: CONTRACEPTION
     Dosage: UNK
     Dates: start: 20111129, end: 20111201

REACTIONS (2)
  - UTERINE PERFORATION [None]
  - DEVICE DISLOCATION [None]
